FAERS Safety Report 9424270 (Version 1)
Quarter: 2013Q3

REPORT INFORMATION
  Report Type: Spontaneous
  Country: US (occurrence: None)
  Receive Date: 20130726
  Receipt Date: 20130726
  Transmission Date: 20140515
  Serious: Yes (Death)
  Sender: FDA-Public Use
  Company Number: None

PATIENT
  Age: 56 Year
  Sex: Female
  Weight: 73.48 kg

DRUGS (13)
  1. AFINITOR [Suspect]
     Indication: BREAST CANCER
     Dosage: 10 MG DAILY BY MOUTH?
     Route: 048
     Dates: start: 20120924, end: 20121212
  2. LASIX [Concomitant]
  3. NEXIUM [Concomitant]
  4. GLIPIZIDE [Concomitant]
  5. HCTZ [Concomitant]
  6. METFORMIN [Concomitant]
  7. VIT D [Concomitant]
  8. MVI [Concomitant]
  9. ALPRAZOLAM [Concomitant]
  10. TYKERB [Concomitant]
  11. CLONAZEPAM [Concomitant]
  12. XELODA [Concomitant]
  13. DYAZIDE [Concomitant]

REACTIONS (1)
  - Death [None]
